FAERS Safety Report 16740465 (Version 2)
Quarter: 2019Q3

REPORT INFORMATION
  Report Type: Spontaneous
  Country: US (occurrence: US)
  Receive Date: 20190826
  Receipt Date: 20190828
  Transmission Date: 20191005
  Serious: No
  Sender: FDA-Public Use
  Company Number: US-009507513-1907USA016516

PATIENT
  Sex: Female
  Weight: 95.24 kg

DRUGS (1)
  1. IMPLANON [Suspect]
     Active Substance: ETONOGESTREL
     Indication: CONTRACEPTION
     Dosage: 1 IMPLANT
     Route: 059
     Dates: start: 20180917, end: 20190730

REACTIONS (8)
  - Anaemia [Unknown]
  - Iron deficiency [Unknown]
  - Nervousness [Unknown]
  - Circumstance or information capable of leading to medication error [Unknown]
  - Menometrorrhagia [Unknown]
  - Drug ineffective [Unknown]
  - Suspected counterfeit product [Unknown]
  - Expired product administered [Unknown]
